FAERS Safety Report 4291464-5 (Version None)
Quarter: 2004Q1

REPORT INFORMATION
  Report Type: 
  Country: None (occurrence: None)
  Receive Date: 20040209
  Receipt Date: 20040209
  Transmission Date: 20041129
  Serious: Yes (Hospitalization)
  Sender: FDA-Public Use
  Company Number: None

PATIENT
  Sex: Female
  Weight: 61.2356 kg

DRUGS (17)
  1. TAXOTERE [Suspect]
     Indication: BREAST CANCER
     Dosage: 124 MG IV Q 3 WKS
     Route: 042
     Dates: start: 20031216
  2. TAXOTERE [Suspect]
     Indication: BREAST CANCER
     Dosage: 124 MG IV Q 3 WKS
     Route: 042
     Dates: start: 20040106
  3. TAXOTERE [Suspect]
     Indication: BREAST CANCER
     Dosage: 124 MG IV Q 3 WKS
     Route: 042
     Dates: start: 20040203
  4. CARBOPLATIN [Suspect]
     Indication: BREAST CANCER
     Dosage: 535 MG IV 3 WKS
     Route: 042
     Dates: start: 20031216
  5. CARBOPLATIN [Suspect]
     Indication: BREAST CANCER
     Dosage: 535 MG IV 3 WKS
     Route: 042
     Dates: start: 20040106
  6. CARBOPLATIN [Suspect]
     Indication: BREAST CANCER
     Dosage: 535 MG IV 3 WKS
     Route: 042
     Dates: start: 20040203
  7. HERCEPTIN [Suspect]
     Indication: BREAST CANCER
     Dosage: 122 MG IV QW
     Route: 042
     Dates: start: 20031222
  8. HERCEPTIN [Suspect]
     Indication: BREAST CANCER
     Dosage: 122 MG IV QW
     Route: 042
     Dates: start: 20031229
  9. HERCEPTIN [Suspect]
     Indication: BREAST CANCER
     Dosage: 122 MG IV QW
     Route: 042
     Dates: start: 20040106
  10. HERCEPTIN [Suspect]
     Indication: BREAST CANCER
     Dosage: 122 MG IV QW
     Route: 042
     Dates: start: 20040112
  11. HERCEPTIN [Suspect]
     Indication: BREAST CANCER
     Dosage: 122 MG IV QW
     Route: 042
     Dates: start: 20040121
  12. HERCEPTIN [Suspect]
     Indication: BREAST CANCER
     Dosage: 122 MG IV QW
     Route: 042
     Dates: start: 20040127
  13. HERCEPTIN [Suspect]
     Indication: BREAST CANCER
     Dosage: 245 MG IV LOADING DOSE
     Route: 042
     Dates: start: 20031215
  14. ALOXI [Concomitant]
  15. PHENERGAN [Concomitant]
  16. DEMEROL [Concomitant]
  17. DECADRON [Concomitant]

REACTIONS (4)
  - HAEMATOMA [None]
  - IMPLANT SITE REACTION [None]
  - ROAD TRAFFIC ACCIDENT [None]
  - SWELLING [None]
